FAERS Safety Report 14307344 (Version 1)
Quarter: 2017Q4

REPORT INFORMATION
  Report Type: Spontaneous
  Country: US (occurrence: US)
  Receive Date: 20171220
  Receipt Date: 20171220
  Transmission Date: 20180321
  Serious: No
  Sender: FDA-Public Use
  Company Number: US-ENDO PHARMACEUTICALS INC-2017-003529

PATIENT
  Sex: Female

DRUGS (1)
  1. OXYBUTYNIN CHLORIDE TABLETS [Suspect]
     Active Substance: OXYBUTYNIN CHLORIDE
     Indication: HYPERTONIC BLADDER
     Dosage: 1 DF, BID
     Route: 065
     Dates: start: 2017, end: 2017

REACTIONS (3)
  - Product taste abnormal [Unknown]
  - Product solubility abnormal [Unknown]
  - Retching [Unknown]

NARRATIVE: CASE EVENT DATE: 2017
